FAERS Safety Report 9000273 (Version 2)
Quarter: 2013Q1

REPORT INFORMATION
  Report Type: Spontaneous
  Country: AU (occurrence: AU)
  Receive Date: 20130106
  Receipt Date: 20130318
  Transmission Date: 20140127
  Serious: Yes (Other)
  Sender: FDA-Public Use
  Company Number: AU-JNJFOC-20120703495

PATIENT
  Sex: Female
  Weight: 64.2 kg

DRUGS (8)
  1. PREZISTA [Suspect]
     Indication: IMMUNODEFICIENCY
     Route: 048
     Dates: start: 20120705
  2. PREZISTA [Suspect]
     Indication: IMMUNODEFICIENCY
     Route: 048
     Dates: start: 20110822
  3. NORVIR [Suspect]
     Indication: IMMUNODEFICIENCY
     Route: 048
     Dates: start: 20110822
  4. VIREAD [Suspect]
     Indication: IMMUNODEFICIENCY
     Route: 048
     Dates: start: 20110822
  5. FOLIC ACID [Concomitant]
     Indication: PREGNANCY
     Route: 048
     Dates: start: 20120701
  6. CHOLECALCIFEROL [Concomitant]
     Indication: VITAMIN D DEFICIENCY
     Route: 048
     Dates: start: 20120705
  7. THIAMINE [Concomitant]
     Indication: VITAMIN SUPPLEMENTATION
     Route: 048
     Dates: start: 20120701
  8. TRUVADA [Concomitant]
     Route: 065

REACTIONS (2)
  - Abortion spontaneous [Unknown]
  - Exposure during pregnancy [Recovered/Resolved]
